FAERS Safety Report 6456813-8 (Version None)
Quarter: 2009Q4

REPORT INFORMATION
  Report Type: 
  Country: None (occurrence: None)
  Receive Date: 20091124
  Receipt Date: 20091124
  Transmission Date: 20100525
  Serious: Yes (Other)
  Sender: FDA-Public Use
  Company Number: None

PATIENT
  Age: 53 Year
  Sex: Female
  Weight: 72.5755 kg

DRUGS (1)
  1. LYRICA [Suspect]
     Indication: NEURALGIA
     Dosage: 1 CAPSULE P-D 2 TIMES DAILY PO
     Route: 048
     Dates: start: 20091111, end: 20091120

REACTIONS (3)
  - ABDOMINAL DISCOMFORT [None]
  - RASH ERYTHEMATOUS [None]
  - SWELLING [None]
